FAERS Safety Report 9720794 (Version 2)
Quarter: 2014Q1

REPORT INFORMATION
  Report Type: Spontaneous
  Country: US (occurrence: US)
  Receive Date: 20131129
  Receipt Date: 20140206
  Transmission Date: 20141002
  Serious: Yes (Hospitalization)
  Sender: FDA-Public Use
  Company Number: US-JNJFOC-20131113038

PATIENT
  Age: 80 Year
  Sex: Female

DRUGS (24)
  1. XARELTO [Suspect]
     Indication: CEREBROVASCULAR ACCIDENT PROPHYLAXIS
     Dosage: WITH EVENING MEAL
     Route: 048
     Dates: start: 201305, end: 201311
  2. XARELTO [Suspect]
     Indication: ATRIAL FIBRILLATION
     Dosage: WITH EVENING MEAL
     Route: 048
     Dates: start: 201305, end: 201311
  3. LEFLUNOMIDE [Concomitant]
     Route: 048
  4. VICODIN [Concomitant]
     Indication: PAIN
     Dosage: 10/650MG ONE TABLET EVERY 4 HOURS AS NEEDED
     Route: 048
  5. PLAQUENIL [Concomitant]
     Route: 048
  6. KLOR-CON [Concomitant]
     Dosage: WITH FOOD
     Route: 048
  7. LISINOPRIL [Concomitant]
     Route: 048
  8. LORAZEPAM [Concomitant]
     Route: 048
  9. METOPROLOL TARTRATE [Concomitant]
     Dosage: WITH MEALS
     Route: 048
  10. NEXIUM [Concomitant]
     Route: 048
  11. PRAZOSIN HCL [Concomitant]
     Route: 048
  12. PRAZOSIN HCL [Concomitant]
     Dosage: TAKE 1 TABLET BY ORAL ROUTE EVERY DAY
     Route: 048
  13. PREDNISONE [Concomitant]
     Dosage: 0.5MG/KG
     Route: 048
  14. PROMETHAZINE HCL [Concomitant]
     Dosage: 1 TABLET FOR EVERY 4 AS NEEDED
     Route: 048
  15. THEOPHYLLINE [Concomitant]
     Dosage: 300MG/1/2 OF A TABLET /150MG TWICE A DAY/ ORAL
     Route: 048
  16. VENTOLIN HFA [Concomitant]
     Dosage: 90MCG/PUFF /INHALER/ 2 PUFFS Q4 TO 6 HOURS/ INHALATION
     Route: 055
  17. LASIX [Concomitant]
     Route: 065
  18. LASIX [Concomitant]
     Route: 065
  19. NITROGLYCERIN [Concomitant]
     Route: 065
  20. NITROGLYCERIN [Concomitant]
     Route: 060
  21. CIPROFLOXACIN [Concomitant]
     Indication: URINARY TRACT INFECTION
     Route: 065
  22. DIGOXIN [Concomitant]
     Route: 065
  23. OMEPRAZOLE [Concomitant]
     Route: 065
  24. CELEBREX [Concomitant]
     Route: 065

REACTIONS (7)
  - Bronchopneumonia [Unknown]
  - Cardiac failure congestive [Unknown]
  - Cerebral infarction [Unknown]
  - Drug ineffective [Unknown]
  - Dehydration [Unknown]
  - Asthenia [Unknown]
  - Headache [Unknown]
